FAERS Safety Report 4947453-8 (Version None)
Quarter: 2006Q1

REPORT INFORMATION
  Report Type: 
  Country: None (occurrence: None)
  Receive Date: 20060319
  Receipt Date: 20060117
  Transmission Date: 20060701
  Serious: Yes (Other)
  Sender: FDA-Public Use
  Company Number: PHEH2006US01064

PATIENT
  Age: 34 Year
  Sex: Male

DRUGS (2)
  1. TRILEPTAL [Suspect]
     Indication: BIPOLAR DISORDER
     Dosage: 600 MG, QD
     Dates: start: 20051201
  2. TRILEPTAL [Suspect]
     Dosage: 900 MG, QD

REACTIONS (19)
  - AGGRESSION [None]
  - AGITATION [None]
  - APATHY [None]
  - ASTHENIA [None]
  - CHEST DISCOMFORT [None]
  - DIZZINESS [None]
  - DYSPNOEA [None]
  - ENERGY INCREASED [None]
  - FEELING ABNORMAL [None]
  - HYPERTENSION [None]
  - IMPATIENCE [None]
  - IRRITABILITY [None]
  - MOOD SWINGS [None]
  - PALPITATIONS [None]
  - PARANOIA [None]
  - PHARYNGOLARYNGEAL PAIN [None]
  - SELF-INJURIOUS IDEATION [None]
  - STRESS [None]
  - THERAPEUTIC RESPONSE UNEXPECTED [None]
